FAERS Safety Report 5207740-5 (Version None)
Quarter: 2006Q4

REPORT INFORMATION
  Report Type: 
  Country: None (occurrence: None)
  Receive Date: 20061030
  Receipt Date: 20060927
  Transmission Date: 20070319
  Serious: Yes (Death, Hospitalization)
  Sender: FDA-Public Use
  Company Number: 2006CT000744

PATIENT
  Age: 75 Year
  Sex: Female
  Weight: 62.1 kg

DRUGS (10)
  1. VENTAVIS [Suspect]
     Indication: PULMONARY HYPERTENSION
     Dosage: 5 UG; 6XD; INH
     Route: 055
     Dates: start: 20060828, end: 20060927
  2. SILDENAFIL CITRATE [Concomitant]
  3. LASIX [Concomitant]
  4. POTASSIUM ACETATE [Concomitant]
  5. TRACLEER [Concomitant]
  6. FERROUS SULFATE TAB [Concomitant]
  7. CARAFATE [Concomitant]
  8. AMLODIPINE [Concomitant]
  9. PRILOSEC [Concomitant]
  10. COLACE [Concomitant]

REACTIONS (1)
  - PULMONARY HYPERTENSION [None]
